FAERS Safety Report 23906848 (Version 2)
Quarter: 2024Q2

REPORT INFORMATION
  Report Type: Report from Study
  Country: US (occurrence: US)
  Receive Date: 20240528
  Receipt Date: 20240608
  Transmission Date: 20240716
  Serious: Yes (Other)
  Sender: FDA-Public Use
  Company Number: US-JNJFOC-20240515628

PATIENT
  Age: 73 Year
  Sex: Male

DRUGS (1)
  1. BALVERSA [Suspect]
     Active Substance: ERDAFITINIB
     Indication: Bladder cancer
     Route: 048

REACTIONS (4)
  - Dry mouth [Unknown]
  - Constipation [Unknown]
  - Decreased appetite [Unknown]
  - Ageusia [Unknown]
